FAERS Safety Report 6941170-0 (Version None)
Quarter: 2010Q3

REPORT INFORMATION
  Report Type: 
  Country: None (occurrence: None)
  Receive Date: 20100825
  Receipt Date: 20100607
  Transmission Date: 20110219
  Serious: No
  Sender: FDA-Public Use
  Company Number: US-BRISTOL-MYERS SQUIBB COMPANY-15137383

PATIENT
  Age: 55 Year
  Sex: Female

DRUGS (7)
  1. ONGLYZA [Suspect]
     Indication: DIABETES MELLITUS
  2. TRICOR [Concomitant]
  3. OMEGA 3 FATTY ACID [Concomitant]
  4. ENABLEX [Concomitant]
  5. XANAX [Concomitant]
  6. COUMADIN [Concomitant]
  7. CRESTOR [Concomitant]

REACTIONS (2)
  - OEDEMA PERIPHERAL [None]
  - RASH [None]
